FAERS Safety Report 11251653 (Version 1)
Quarter: 2015Q3

REPORT INFORMATION
  Report Type: Spontaneous
  Country: US (occurrence: US)
  Receive Date: 20150708
  Receipt Date: 20150708
  Transmission Date: 20151125
  Serious: No
  Sender: FDA-Public Use
  Company Number: US-ELI_LILLY_AND_COMPANY-US201205002252

PATIENT
  Sex: Female

DRUGS (34)
  1. KEFLEX [Concomitant]
     Active Substance: CEPHALEXIN
  2. SULFA                              /00150702/ [Concomitant]
     Active Substance: UNSPECIFIED INGREDIENT
  3. CODEINE [Concomitant]
     Active Substance: CODEINE
  4. TRICOR [Concomitant]
     Active Substance: FENOFIBRATE
  5. HYDROCODONE [Concomitant]
     Active Substance: HYDROCODONE
  6. MEDROL [Concomitant]
     Active Substance: METHYLPREDNISOLONE
  7. TYLENOL                                 /SCH/ [Concomitant]
     Indication: PAIN
     Dosage: 325 MG, QID
  8. CIPRO [Concomitant]
     Active Substance: CIPROFLOXACIN HYDROCHLORIDE
  9. PENICILLIN [Concomitant]
     Active Substance: PENICILLIN
  10. STATIN                             /00084401/ [Concomitant]
  11. PROZAC [Suspect]
     Active Substance: FLUOXETINE HYDROCHLORIDE
  12. FLEXERIL [Concomitant]
     Active Substance: CYCLOBENZAPRINE HYDROCHLORIDE
  13. LEVAQUIN [Concomitant]
     Active Substance: LEVOFLOXACIN
  14. MS CONTIN [Concomitant]
     Active Substance: MORPHINE SULFATE
     Indication: PAIN
     Dosage: 30 MG, QID
  15. COZAAR [Concomitant]
     Active Substance: LOSARTAN POTASSIUM
     Indication: HYPERTENSION
     Dosage: 50 MG, BID
  16. CARDIZEM [Concomitant]
     Active Substance: DILTIAZEM HYDROCHLORIDE
  17. GLYBURIDE. [Concomitant]
     Active Substance: GLYBURIDE
  18. THIAZIDE [Concomitant]
     Active Substance: UNSPECIFIED INGREDIENT
  19. BENTYL [Concomitant]
     Active Substance: DICYCLOMINE HYDROCHLORIDE
  20. OXYBUTYNIN [Concomitant]
     Active Substance: OXYBUTYNIN
  21. METFORMIN [Concomitant]
     Active Substance: METFORMIN HYDROCHLORIDE
     Indication: DIABETES MELLITUS
     Dosage: 1000 MG, BID
  22. ROBAXIN [Concomitant]
     Active Substance: METHOCARBAMOL
  23. HYPROMELLOSE [Concomitant]
     Active Substance: HYPROMELLOSES
  24. OXYCONTIN [Concomitant]
     Active Substance: OXYCODONE HYDROCHLORIDE
     Indication: PAIN
     Dosage: 15 MG, QID
  25. BACLOFEN. [Concomitant]
     Active Substance: BACLOFEN
  26. PROTONIX [Concomitant]
     Active Substance: PANTOPRAZOLE SODIUM
     Dosage: 40 MG, BID
  27. CLINDAMYCIN [Concomitant]
     Active Substance: CLINDAMYCIN\CLINDAMYCIN PHOSPHATE
  28. SPIRONOLACTONE. [Concomitant]
     Active Substance: SPIRONOLACTONE
  29. TRAMADOL. [Concomitant]
     Active Substance: TRAMADOL
  30. TENORMIN [Concomitant]
     Active Substance: ATENOLOL
     Indication: PALPITATIONS
     Dosage: 12.5 MG, QD
  31. REQUIP [Concomitant]
     Active Substance: ROPINIROLE HYDROCHLORIDE
     Indication: RESTLESS LEGS SYNDROME
     Dosage: 0.5 MG, PRN
  32. FLOXIN [Concomitant]
     Active Substance: OFLOXACIN
  33. TORSEMIDE. [Concomitant]
     Active Substance: TORSEMIDE
  34. TRILEPTAL [Concomitant]
     Active Substance: OXCARBAZEPINE

REACTIONS (1)
  - Pruritus [Unknown]
